FAERS Safety Report 10307517 (Version 1)
Quarter: 2014Q3

REPORT INFORMATION
  Report Type: Report from Study
  Country: FR (occurrence: MA)
  Receive Date: 20140716
  Receipt Date: 20140716
  Transmission Date: 20150326
  Serious: Yes (Hospitalization, Other)
  Sender: FDA-Public Use
  Company Number: MA-TEVA-494858USA

PATIENT
  Age: 66 Year
  Sex: Female

DRUGS (2)
  1. BENDAMUSTINE HYDROCHLORIDE [Suspect]
     Active Substance: BENDAMUSTINE HYDROCHLORIDE
     Indication: MANTLE CELL LYMPHOMA
     Dosage: UNK, ONCE DAILY
     Route: 042
     Dates: start: 20140705, end: 20140706
  2. MABTHERA [Concomitant]
     Active Substance: RITUXIMAB
     Indication: MANTLE CELL LYMPHOMA
     Dosage: UNK UNK, UNKNOWN FREQ.
     Route: 065
     Dates: start: 20140704

REACTIONS (7)
  - Coma [Unknown]
  - Hallucination [Unknown]
  - Dysstasia [Unknown]
  - Hyperhidrosis [Unknown]
  - Anaemia [Unknown]
  - Aphagia [Unknown]
  - Malaise [Unknown]

NARRATIVE: CASE EVENT DATE: 20140705
